FAERS Safety Report 5048295-8 (Version None)
Quarter: 2006Q3

REPORT INFORMATION
  Report Type: 
  Country: None (occurrence: None)
  Receive Date: 20060711
  Receipt Date: 20060704
  Transmission Date: 20061208
  Serious: Yes (Hospitalization)
  Sender: FDA-Public Use
  Company Number: FR-BRISTOL-MYERS SQUIBB COMPANY-13434857

PATIENT
  Age: 47 Year
  Sex: Female

DRUGS (4)
  1. SINEMET [Suspect]
     Route: 048
     Dates: start: 20060426, end: 20060530
  2. SEROPRAM [Suspect]
     Dates: start: 20040115
  3. REQUIP [Suspect]
     Dates: start: 20050208
  4. STILNOX [Suspect]
     Dates: start: 20040115

REACTIONS (2)
  - NEUTROPENIA [None]
  - WHITE BLOOD CELL COUNT DECREASED [None]
